FAERS Safety Report 18790848 (Version 1)
Quarter: 2021Q1

REPORT INFORMATION
  Report Type: Spontaneous
  Country: US (occurrence: US)
  Receive Date: 20210126
  Receipt Date: 20210126
  Transmission Date: 20210419
  Serious: No
  Sender: FDA-Public Use
  Company Number: US-ASTRAZENECA-2021A010012

PATIENT
  Sex: Female

DRUGS (1)
  1. BREZTRI AEROSPHERE [Suspect]
     Active Substance: BUDESONIDE\FORMOTEROL\GLYCOPYRRONIUM
     Indication: CHRONIC OBSTRUCTIVE PULMONARY DISEASE
     Dosage: TWO PUFFS TWICE DAILY
     Route: 055
     Dates: start: 202012

REACTIONS (4)
  - Therapeutic product effect decreased [Unknown]
  - Intentional product misuse [Unknown]
  - Drug ineffective [Unknown]
  - Dyspnoea [Unknown]
